FAERS Safety Report 5527927-1 (Version None)
Quarter: 2007Q4

REPORT INFORMATION
  Report Type: 
  Country: None (occurrence: None)
  Receive Date: 20071123
  Receipt Date: 20071108
  Transmission Date: 20080405
  Serious: Yes (Other)
  Sender: FDA-Public Use
  Company Number: SP01667

PATIENT
  Age: 55 Year
  Sex: Female

DRUGS (6)
  1. MOVIPREP [Suspect]
     Indication: COLONOSCOPY
     Dosage: 1 LIT, ORAL
     Route: 048
     Dates: start: 20070926, end: 20070926
  2. TRAMADOL HCL [Concomitant]
  3. VENLAFAXINE HCL [Concomitant]
  4. HYDROXYZINE [Concomitant]
  5. MEPRONIZINE [Concomitant]
  6. ALPRAZOLAM [Concomitant]

REACTIONS (1)
  - COLITIS ISCHAEMIC [None]
